FAERS Safety Report 9910355 (Version 3)
Quarter: 2014Q1

REPORT INFORMATION
  Report Type: Spontaneous
  Country: US (occurrence: US)
  Receive Date: 20140219
  Receipt Date: 20140317
  Transmission Date: 20141002
  Serious: Yes (Death, Hospitalization, Other)
  Sender: FDA-Public Use
  Company Number: US-BAXTER-2014BAX007473

PATIENT
  Sex: Male

DRUGS (2)
  1. DIANEAL LOW CALCIUM [Suspect]
     Indication: RENAL FAILURE CHRONIC
     Route: 033
     Dates: start: 2011, end: 20140312
  2. DIANEAL LOW CALCIUM [Suspect]
     Indication: RENAL FAILURE CHRONIC
     Route: 033
     Dates: start: 2011, end: 20140312

REACTIONS (7)
  - Clostridium difficile infection [Fatal]
  - Seizure like phenomena [Recovered/Resolved]
  - Cholelithiasis [Recovered/Resolved]
  - Large intestine polyp [Recovering/Resolving]
  - Atrial fibrillation [Recovering/Resolving]
  - Diarrhoea [Recovering/Resolving]
  - Hypotension [Recovered/Resolved]
